FAERS Safety Report 19646545 (Version 1)
Quarter: 2021Q3

REPORT INFORMATION
  Report Type: Spontaneous
  Country: US (occurrence: US)
  Receive Date: 20210802
  Receipt Date: 20210802
  Transmission Date: 20211014
  Serious: Yes (Other)
  Sender: FDA-Public Use
  Company Number: US-MYLANLABS-2021M1045338

PATIENT
  Sex: Female
  Weight: 86 kg

DRUGS (1)
  1. CLONIDINE TRANSDERMAL SYSTEM [Suspect]
     Active Substance: CLONIDINE
     Indication: CARDIAC DISORDER
     Dosage: 0.3 MILLIGRAM, QD
     Route: 062
     Dates: end: 20210704

REACTIONS (11)
  - Eye pruritus [Unknown]
  - Cough [Unknown]
  - Off label use [Unknown]
  - Drug ineffective [Not Recovered/Not Resolved]
  - Swelling [Unknown]
  - Dyspnoea [Unknown]
  - Unevaluable event [Unknown]
  - Depression [Unknown]
  - Feeling abnormal [Unknown]
  - Application site erythema [Unknown]
  - Pulmonary oedema [Unknown]
